FAERS Safety Report 6629941-1 (Version None)
Quarter: 2010Q1

REPORT INFORMATION
  Report Type: 
  Country: None (occurrence: None)
  Receive Date: 20100311
  Receipt Date: 20090713
  Transmission Date: 20100710
  Serious: No
  Sender: FDA-Public Use
  Company Number: US-BIOGENIDEC-2009BI021465

PATIENT
  Age: 21 Year
  Sex: Male

DRUGS (1)
  1. AVONEX [Suspect]
     Indication: MULTIPLE SCLEROSIS
     Route: 030
     Dates: start: 20030101

REACTIONS (11)
  - CHOKING [None]
  - COORDINATION ABNORMAL [None]
  - DEHYDRATION [None]
  - DRUG INEFFECTIVE [None]
  - HAND DEFORMITY [None]
  - MUSCULOSKELETAL DISORDER [None]
  - SALIVARY HYPERSECRETION [None]
  - TEMPERATURE INTOLERANCE [None]
  - TREMOR [None]
  - VISUAL ACUITY REDUCED [None]
  - WEIGHT DECREASED [None]
